FAERS Safety Report 9305566 (Version 1)
Quarter: 2013Q2

REPORT INFORMATION
  Report Type: Spontaneous
  Country: GB (occurrence: GB)
  Receive Date: 20130523
  Receipt Date: 20130523
  Transmission Date: 20140414
  Serious: Yes (Other)
  Sender: FDA-Public Use
  Company Number: GB-UCBSA-086084

PATIENT
  Sex: Male

DRUGS (1)
  1. CIMZIA [Suspect]

REACTIONS (1)
  - Infection [Unknown]
